FAERS Safety Report 8262408-6 (Version None)
Quarter: 2012Q2

REPORT INFORMATION
  Report Type: 
  Country: None (occurrence: None)
  Receive Date: 20120405
  Receipt Date: 20120329
  Transmission Date: 20120825
  Serious: Yes (Other)
  Sender: FDA-Public Use
  Company Number: IT-PFIZER INC-2012081511

PATIENT
  Age: 53 Year
  Sex: Male

DRUGS (2)
  1. PHENYTOIN SODIUM [Suspect]
     Indication: STATUS EPILEPTICUS
  2. VALPROIC ACID [Interacting]
     Indication: STATUS EPILEPTICUS
     Dosage: UNK

REACTIONS (10)
  - DRUG INTERACTION [None]
  - CORONARY ARTERY DISEASE [None]
  - TOXICITY TO VARIOUS AGENTS [None]
  - ELECTROCARDIOGRAM ABNORMAL [None]
  - ELECTROCARDIOGRAM ST SEGMENT DEPRESSION [None]
  - ELECTROCARDIOGRAM ST SEGMENT ELEVATION [None]
  - HAEMODYNAMIC INSTABILITY [None]
  - CARDIOTOXICITY [None]
  - CARDIAC HYPERTROPHY [None]
  - HYPOTENSION [None]
